FAERS Safety Report 5245459-5 (Version None)
Quarter: 2007Q1

REPORT INFORMATION
  Report Type: 
  Country: None (occurrence: None)
  Receive Date: 20070223
  Receipt Date: 20070215
  Transmission Date: 20070707
  Serious: Yes (Life-Threatening)
  Sender: FDA-Public Use
  Company Number: DE-ELI_LILLY_AND_COMPANY-DE200702003873

PATIENT
  Age: 71 Year
  Sex: Male
  Weight: 748 kg

DRUGS (1)
  1. GEMZAR [Suspect]
     Indication: BRONCHIAL CARCINOMA
     Dosage: 1853.5 MG, UNK
     Route: 042
     Dates: start: 20070103

REACTIONS (6)
  - BLOOD PRESSURE DECREASED [None]
  - DYSPNOEA [None]
  - HYPERHIDROSIS [None]
  - LUNG DISORDER [None]
  - RESPIRATORY FAILURE [None]
  - TACHYCARDIA [None]
